FAERS Safety Report 12774630 (Version 14)
Quarter: 2022Q4

REPORT INFORMATION
  Report Type: Spontaneous
  Country: US (occurrence: US)
  Receive Date: 20160923
  Receipt Date: 20221028
  Transmission Date: 20230112
  Serious: Yes (Life-Threatening, Hospitalization, Other)
  Sender: FDA-Public Use
  Company Number: PHHY2016US126962

PATIENT
  Age: 12 Year
  Sex: Female
  Weight: 53.3 kg

DRUGS (32)
  1. ILARIS [Suspect]
     Active Substance: CANAKINUMAB
     Indication: Still^s disease
     Dosage: 180 MG, UNK
     Route: 058
     Dates: start: 20130531, end: 201506
  2. CYCLOSPORINE [Suspect]
     Active Substance: CYCLOSPORINE
     Indication: Still^s disease
     Dosage: 70 MG, UNK
     Route: 065
     Dates: start: 201311, end: 201504
  3. CYCLOSPORINE [Suspect]
     Active Substance: CYCLOSPORINE
     Indication: Staphylococcal infection
     Dosage: UNK
     Route: 065
     Dates: start: 20150815
  4. CYCLOSPORINE [Suspect]
     Active Substance: CYCLOSPORINE
     Dosage: 100 MG, QD
     Route: 065
     Dates: start: 20150924, end: 201603
  5. CYCLOSPORINE [Suspect]
     Active Substance: CYCLOSPORINE
     Dosage: UNK
     Route: 065
     Dates: start: 20160527
  6. CYCLOSPORINE [Suspect]
     Active Substance: CYCLOSPORINE
     Dosage: UNK
     Route: 065
     Dates: start: 20160802
  7. CYCLOSPORINE [Suspect]
     Active Substance: CYCLOSPORINE
     Dosage: 50 MG, UNK
     Route: 065
     Dates: start: 20160815
  8. GENGRAF [Suspect]
     Active Substance: CYCLOSPORINE
     Indication: Still^s disease
     Dosage: 70 MG, QD
     Route: 065
     Dates: start: 201311, end: 201504
  9. GENGRAF [Suspect]
     Active Substance: CYCLOSPORINE
     Dosage: UNK
     Route: 065
     Dates: start: 20150815
  10. GENGRAF [Suspect]
     Active Substance: CYCLOSPORINE
     Dosage: 100 MG, QD
     Route: 065
     Dates: start: 20150924, end: 201603
  11. GENGRAF [Suspect]
     Active Substance: CYCLOSPORINE
     Dosage: UNK
     Route: 065
     Dates: start: 20160527
  12. GENGRAF [Suspect]
     Active Substance: CYCLOSPORINE
     Dosage: UNK
     Route: 065
     Dates: start: 20160802
  13. ARCALYST [Suspect]
     Active Substance: RILONACEPT
     Indication: Haemophagocytic lymphohistiocytosis
     Dosage: 110 MG, QD
     Route: 065
     Dates: start: 20160626
  14. ARCALYST [Suspect]
     Active Substance: RILONACEPT
     Dosage: UNK
     Route: 065
     Dates: start: 20160715
  15. ARCALYST [Suspect]
     Active Substance: RILONACEPT
     Dosage: UNK
     Route: 065
     Dates: start: 20160801
  16. KINERET [Suspect]
     Active Substance: ANAKINRA
     Indication: Juvenile idiopathic arthritis
     Dosage: 20 MG, UNK
     Route: 065
     Dates: start: 20110919, end: 20130527
  17. KINERET [Suspect]
     Active Substance: ANAKINRA
     Indication: Haemophagocytic lymphohistiocytosis
     Dosage: 100 MG, UNK
     Route: 065
     Dates: start: 20151013, end: 20160625
  18. KINERET [Suspect]
     Active Substance: ANAKINRA
     Dosage: UNK
     Route: 065
     Dates: start: 20160529
  19. METHYLPREDNISOLONE [Suspect]
     Active Substance: METHYLPREDNISOLONE
     Indication: Staphylococcal infection
     Dosage: UNK
     Route: 065
     Dates: start: 20160815
  20. PRIVIGEN [Suspect]
     Active Substance: HUMAN IMMUNOGLOBULIN G
     Indication: Still^s disease
     Dosage: 70 G, UNK
     Route: 065
     Dates: start: 201311, end: 201504
  21. PRIVIGEN [Suspect]
     Active Substance: HUMAN IMMUNOGLOBULIN G
     Dosage: 70 G, UNK
     Route: 065
     Dates: start: 201603, end: 20160527
  22. PROGRAF [Concomitant]
     Active Substance: TACROLIMUS
     Indication: Still^s disease
     Dosage: 1.6 MG, QD
     Route: 048
     Dates: start: 201504, end: 201507
  23. CALCIUM [Concomitant]
     Active Substance: CALCIUM
     Indication: Osteopenia
     Dosage: 1200 MG, QD
     Route: 065
     Dates: start: 2011
  24. CALCIUM [Concomitant]
     Active Substance: CALCIUM
     Dosage: 1200 MG, QD
     Route: 065
     Dates: start: 20161020
  25. FLUCONAZOLE [Concomitant]
     Active Substance: FLUCONAZOLE
     Indication: Candida infection
     Dosage: 200 MG, QD
     Route: 065
     Dates: start: 20160804
  26. LISINOPRIL [Concomitant]
     Active Substance: LISINOPRIL
     Indication: Hypertension
     Dosage: 10 MG, QD
     Route: 065
     Dates: start: 20160818
  27. LORATADINE [Concomitant]
     Active Substance: LORATADINE
     Indication: Hypersensitivity
     Dosage: 10 MG, QD
     Route: 065
     Dates: start: 2011
  28. LORATADINE [Concomitant]
     Active Substance: LORATADINE
     Indication: Anaemia
     Dosage: 10 MG, QD
     Route: 065
     Dates: start: 20150918
  29. VYVANSE [Concomitant]
     Active Substance: LISDEXAMFETAMINE DIMESYLATE
     Indication: Attention deficit hyperactivity disorder
     Dosage: 40 MG, QD
     Route: 065
     Dates: start: 2011
  30. VYVANSE [Concomitant]
     Active Substance: LISDEXAMFETAMINE DIMESYLATE
     Dosage: 40 MG, QD
     Route: 065
     Dates: start: 20140812
  31. NORDITROPIN [Concomitant]
     Active Substance: SOMATROPIN
     Indication: Product used for unknown indication
     Dosage: 1.4 MG, QD
     Route: 065
     Dates: start: 20140707, end: 20170815
  32. FERROUS SULFATE [Concomitant]
     Active Substance: FERROUS SULFATE
     Indication: Anaemia
     Dosage: 325 MG, BID
     Route: 065
     Dates: start: 20151217

REACTIONS (12)
  - Gastritis haemorrhagic [Recovered/Resolved]
  - Staphylococcal sepsis [Recovered/Resolved]
  - Haemophagocytic lymphohistiocytosis [Recovered/Resolved]
  - Thrombocytopenia [Unknown]
  - Hypertransaminasaemia [Unknown]
  - Anaemia [Recovering/Resolving]
  - Fatigue [Unknown]
  - Duodenal ulcer [Unknown]
  - Back pain [Unknown]
  - Oedema peripheral [Unknown]
  - Skin disorder [Unknown]
  - Oesophageal disorder [Unknown]

NARRATIVE: CASE EVENT DATE: 20160531
